FAERS Safety Report 10364438 (Version 1)
Quarter: 2014Q3

REPORT INFORMATION
  Report Type: Spontaneous
  Country: US (occurrence: None)
  Receive Date: 20140804
  Receipt Date: 20140804
  Transmission Date: 20150326
  Serious: No
  Sender: FDA-Public Use
  Company Number: None

PATIENT
  Age: 37 Year
  Sex: Female

DRUGS (1)
  1. SPRIX [Suspect]
     Active Substance: KETOROLAC TROMETHAMINE
     Indication: MIGRAINE
     Dosage: 2 SPRAYS?AS NEEDED?INHALATION
     Route: 055

REACTIONS (6)
  - Medication error [None]
  - Wrong technique in drug usage process [None]
  - Pain [None]
  - Epistaxis [None]
  - Lacrimation increased [None]
  - Product label confusion [None]

NARRATIVE: CASE EVENT DATE: 20140721
